FAERS Safety Report 6225552-0 (Version None)
Quarter: 2009Q2

REPORT INFORMATION
  Report Type: 
  Country: None (occurrence: None)
  Receive Date: 20090612
  Receipt Date: 20090423
  Transmission Date: 20091009
  Serious: No
  Sender: FDA-Public Use
  Company Number: US-ABBOTT-09P-163-0569677-00

PATIENT
  Sex: Male
  Weight: 71.732 kg

DRUGS (2)
  1. HUMIRA [Suspect]
     Indication: CROHN'S DISEASE
     Dates: start: 20090322
  2. ASPIRIN [Concomitant]
     Indication: DRUG USE FOR UNKNOWN INDICATION

REACTIONS (5)
  - BODY TEMPERATURE DECREASED [None]
  - COUGH [None]
  - INFLUENZA LIKE ILLNESS [None]
  - NAUSEA [None]
  - RESPIRATORY TRACT CONGESTION [None]
